FAERS Safety Report 11451428 (Version 1)
Quarter: 2015Q3

REPORT INFORMATION
  Report Type: Spontaneous
  Country: US (occurrence: US)
  Receive Date: 20150903
  Receipt Date: 20150903
  Transmission Date: 20151125
  Serious: Yes (Hospitalization)
  Sender: FDA-Public Use
  Company Number: US-ROCHE-1076237

PATIENT
  Sex: Male

DRUGS (3)
  1. PEGASYS [Suspect]
     Active Substance: PEGINTERFERON ALFA-2A
     Indication: PRODUCT USED FOR UNKNOWN INDICATION
     Route: 065
  2. COPEGUS [Suspect]
     Active Substance: RIBAVIRIN
     Indication: PRODUCT USED FOR UNKNOWN INDICATION
     Route: 065
  3. INCIVEK [Suspect]
     Active Substance: TELAPREVIR
     Indication: PRODUCT USED FOR UNKNOWN INDICATION

REACTIONS (12)
  - Dyspnoea [Unknown]
  - Feeling abnormal [Unknown]
  - Asthenia [Unknown]
  - Eyelid disorder [Unknown]
  - Adverse reaction [Unknown]
  - Pruritus [Unknown]
  - Joint swelling [Unknown]
  - Skin exfoliation [Unknown]
  - Weight increased [Unknown]
  - Swelling face [Unknown]
  - Dry skin [Unknown]
  - Visual impairment [Unknown]
